FAERS Safety Report 4964662-2 (Version None)
Quarter: 2006Q2

REPORT INFORMATION
  Report Type: 
  Country: None (occurrence: None)
  Receive Date: 20060406
  Receipt Date: 20060329
  Transmission Date: 20061013
  Serious: Yes (Hospitalization, Other)
  Sender: FDA-Public Use
  Company Number: US-MERCK-0603USA04728

PATIENT
  Age: 74 Year
  Sex: Female
  Weight: 57 kg

DRUGS (9)
  1. VIOXX [Suspect]
     Indication: ARTHRALGIA
     Route: 048
     Dates: start: 19990101, end: 20010701
  2. VIOXX [Suspect]
     Indication: OSTEOARTHRITIS
     Route: 048
     Dates: start: 19990101, end: 20010701
  3. TYLENOL (CAPLET) [Concomitant]
     Route: 065
  4. ACETAMINOPHEN [Concomitant]
     Route: 065
  5. ECOTRIN [Concomitant]
     Route: 065
  6. PROVENTIL [Concomitant]
     Route: 065
  7. FLOVENT [Concomitant]
     Route: 065
  8. CELEBREX [Concomitant]
     Route: 065
  9. BEXTRA [Concomitant]
     Route: 065

REACTIONS (3)
  - CHEST PAIN [None]
  - DRUG HYPERSENSITIVITY [None]
  - MYOCARDIAL INFARCTION [None]
